FAERS Safety Report 4483808-6 (Version None)
Quarter: 2004Q4

REPORT INFORMATION
  Report Type: 
  Country: None (occurrence: None)
  Receive Date: 20041025
  Receipt Date: 20040701
  Transmission Date: 20050328
  Serious: Yes (Hospitalization, Other)
  Sender: FDA-Public Use
  Company Number: PHEH2004US07116

PATIENT
  Age: 35 Year
  Sex: Female
  Weight: 54 kg

DRUGS (3)
  1. ZELNORM [Suspect]
     Indication: IRRITABLE BOWEL SYNDROME
     Dosage: 6 MG, BID
     Route: 048
     Dates: start: 20030926, end: 20031001
  2. ZELNORM [Suspect]
     Dosage: 6 MG, BID
     Route: 048
     Dates: start: 20031001, end: 20031001
  3. TOPROL-XL [Concomitant]
     Indication: MITRAL VALVE PROLAPSE
     Dosage: 25 MG, UNK
     Dates: start: 20010101

REACTIONS (7)
  - ABDOMINAL PAIN UPPER [None]
  - ANOREXIA [None]
  - BACK PAIN [None]
  - CHOLECYSTECTOMY [None]
  - GALLBLADDER DISORDER [None]
  - RHINITIS [None]
  - WEIGHT DECREASED [None]
